FAERS Safety Report 15847112 (Version 2)
Quarter: 2019Q1

REPORT INFORMATION
  Report Type: Spontaneous
  Country: US (occurrence: US)
  Receive Date: 20190121
  Receipt Date: 20190216
  Transmission Date: 20190417
  Serious: No
  Sender: FDA-Public Use
  Company Number: PHHY2019US012692

PATIENT
  Sex: Female

DRUGS (1)
  1. ICAPS [Suspect]
     Active Substance: MINERALS\VITAMINS
     Indication: PRODUCT USED FOR UNKNOWN INDICATION
     Route: 065

REACTIONS (2)
  - Product size issue [Unknown]
  - Dysphagia [Unknown]
